FAERS Safety Report 24888818 (Version 1)
Quarter: 2025Q1

REPORT INFORMATION
  Report Type: Spontaneous
  Country: US (occurrence: US)
  Receive Date: 20250127
  Receipt Date: 20250127
  Transmission Date: 20250409
  Serious: No
  Sender: MYLAN
  Company Number: US-MYLANLABS-2025M1004863

PATIENT
  Sex: Female

DRUGS (30)
  1. LYRICA [Suspect]
     Active Substance: PREGABALIN
     Indication: Product used for unknown indication
     Route: 065
  2. HYDROXYCHLOROQUINE SULFATE [Concomitant]
     Active Substance: HYDROXYCHLOROQUINE SULFATE
     Route: 065
  3. IBUPROFEN [Concomitant]
     Active Substance: IBUPROFEN
     Route: 065
  4. LISINOPRIL [Concomitant]
     Active Substance: LISINOPRIL
     Route: 065
  5. LOVASTATIN [Concomitant]
     Active Substance: LOVASTATIN
     Route: 065
  6. DEPO-MEDROL [Concomitant]
     Active Substance: METHYLPREDNISOLONE ACETATE
     Route: 065
  7. FERROUS SULFATE [Concomitant]
     Active Substance: FERROUS SULFATE
     Route: 065
  8. VITAMIN B12 [Concomitant]
     Active Substance: CYANOCOBALAMIN
     Route: 065
  9. VITAMIN D3 [Concomitant]
     Active Substance: CHOLECALCIFEROL
     Route: 065
  10. NICODERM CQ [Concomitant]
     Active Substance: NICOTINE
     Route: 065
  11. METHOTREXATE [Concomitant]
     Active Substance: METHOTREXATE
     Route: 065
  12. METHYLPREDNISOLONE [Concomitant]
     Active Substance: METHYLPREDNISOLONE
     Route: 065
  13. FOLIC ACID [Concomitant]
     Active Substance: FOLIC ACID
     Route: 065
  14. KETOROLAC TROMETHAMINE [Concomitant]
     Active Substance: KETOROLAC TROMETHAMINE
     Route: 065
  15. HYDROXYCHLOROQUINE [Concomitant]
     Active Substance: HYDROXYCHLOROQUINE
     Route: 065
  16. MEDROL [Concomitant]
     Active Substance: METHYLPREDNISOLONE
     Route: 065
  17. MENAQUINONE 6 [Concomitant]
     Active Substance: MENAQUINONE 6
     Route: 065
  18. HUMIRA [Concomitant]
     Active Substance: ADALIMUMAB
     Route: 065
  19. METAXALONE [Concomitant]
     Active Substance: METAXALONE
     Route: 065
  20. LORTAB [Concomitant]
     Active Substance: ACETAMINOPHEN\HYDROCODONE BITARTRATE
     Route: 065
  21. TRAMADOL [Concomitant]
     Active Substance: TRAMADOL
     Route: 065
  22. VITAMIN D [Concomitant]
     Active Substance: VITAMIN D NOS
     Route: 065
  23. TRAZODONE [Concomitant]
     Active Substance: TRAZODONE HYDROCHLORIDE
     Route: 065
  24. TIZANIDINE [Concomitant]
     Active Substance: TIZANIDINE
     Route: 065
  25. MOBIC [Concomitant]
     Active Substance: MELOXICAM
     Route: 065
  26. RANITIDINE [Concomitant]
     Active Substance: RANITIDINE
     Route: 065
  27. CELEBREX [Concomitant]
     Active Substance: CELECOXIB
     Route: 065
  28. NEXIUM [Concomitant]
     Active Substance: ESOMEPRAZOLE MAGNESIUM
     Route: 065
  29. VICODIN ES [Concomitant]
     Active Substance: ACETAMINOPHEN\HYDROCODONE BITARTRATE
     Route: 065
  30. ADVIL [Concomitant]
     Active Substance: IBUPROFEN
     Route: 065

REACTIONS (1)
  - Tachycardia [Unknown]
